FAERS Safety Report 18967075 (Version 1)
Quarter: 2021Q1

REPORT INFORMATION
  Report Type: Spontaneous
  Country: US (occurrence: US)
  Receive Date: 20210304
  Receipt Date: 20210304
  Transmission Date: 20210420
  Serious: No
  Sender: FDA-Public Use
  Company Number: US-TEVA-2021-US-1866988

PATIENT
  Age: 66 Year
  Sex: Male

DRUGS (5)
  1. AUSTEDO [Suspect]
     Active Substance: DEUTETRABENAZINE
     Indication: TARDIVE DYSKINESIA
     Dosage: 30 MILLIGRAM DAILY; 6 MG AND 9 MG TABLETS
     Route: 065
     Dates: start: 20201117, end: 20201231
  2. PRAVASTATIN SODIUM 40 MG [Concomitant]
     Active Substance: PRAVASTATIN SODIUM
     Route: 048
  3. CYMBALTA [Concomitant]
     Active Substance: DULOXETINE HYDROCHLORIDE
     Route: 048
  4. POTASSIUM CHLORIDE 20 MEQ [Concomitant]
     Route: 048
  5. AUSTEDO [Suspect]
     Active Substance: DEUTETRABENAZINE
     Dosage: 24 MILLIGRAM DAILY;
     Route: 065
     Dates: start: 20201231

REACTIONS (1)
  - Oral pain [Unknown]

NARRATIVE: CASE EVENT DATE: 202012
